FAERS Safety Report 7279313-4 (Version None)
Quarter: 2011Q1

REPORT INFORMATION
  Report Type: 
  Country: None (occurrence: None)
  Receive Date: 20110207
  Receipt Date: 20110125
  Transmission Date: 20110831
  Serious: Yes (Hospitalization)
  Sender: FDA-Public Use
  Company Number: AU-GENENTECH-313227

PATIENT
  Sex: Female

DRUGS (1)
  1. LUCENTIS [Suspect]
     Indication: MACULAR DEGENERATION
     Dosage: 0.05 ML, UNKNOWN
     Route: 031
     Dates: start: 20100301

REACTIONS (5)
  - ANKLE FRACTURE [None]
  - INTESTINAL OBSTRUCTION [None]
  - VISUAL ACUITY REDUCED [None]
  - FALL [None]
  - PELVIC ABSCESS [None]
